FAERS Safety Report 7568619-7 (Version None)
Quarter: 2011Q2

REPORT INFORMATION
  Report Type: 
  Country: None (occurrence: None)
  Receive Date: 20110623
  Receipt Date: 20110615
  Transmission Date: 20111010
  Serious: Yes (Other)
  Sender: FDA-Public Use
  Company Number: PHHY2011BR53061

PATIENT
  Age: 13 Year
  Sex: Female

DRUGS (5)
  1. GLUCOCORTICOIDS [Suspect]
     Indication: DERMATOMYOSITIS
     Dosage: UNK UKN, UNK
     Route: 048
  2. METHOTREXATE [Suspect]
     Indication: DERMATOMYOSITIS
     Dosage: UNK UKN, UNK
  3. AZATHIOPRINE [Suspect]
     Indication: DERMATOMYOSITIS
     Dosage: UNK UKN, UNK
  4. CHLOROQUINE [Suspect]
     Indication: DERMATOMYOSITIS
     Dosage: UNK UKN, UNK
  5. METHYLPREDNISOLONE [Suspect]
     Indication: DERMATOMYOSITIS
     Dosage: UNK UKN, UNK

REACTIONS (3)
  - ARTHRALGIA [None]
  - INTERMITTENT CLAUDICATION [None]
  - OSTEONECROSIS [None]
